FAERS Safety Report 9443505 (Version 1)
Quarter: 2013Q3

REPORT INFORMATION
  Report Type: Spontaneous
  Country: CA (occurrence: CA)
  Receive Date: 20130806
  Receipt Date: 20130806
  Transmission Date: 20140515
  Serious: Yes (Other)
  Sender: FDA-Public Use
  Company Number: CHPA2013CA012338

PATIENT
  Sex: Male

DRUGS (2)
  1. HABITROL [Suspect]
     Dosage: UNK, UNK
     Route: 062
  2. HABITROL [Suspect]
     Dosage: 21 MG, UNK
     Route: 062
     Dates: start: 20130801

REACTIONS (1)
  - Reproductive tract disorder [Not Recovered/Not Resolved]
